FAERS Safety Report 13498860 (Version 1)
Quarter: 2017Q2

REPORT INFORMATION
  Report Type: Spontaneous
  Country: US (occurrence: US)
  Receive Date: 20170429
  Receipt Date: 20170429
  Transmission Date: 20170830
  Serious: Yes (Life-Threatening, Other)
  Sender: FDA-Public Use
  Company Number: None

PATIENT
  Age: 11 Year
  Sex: Female
  Weight: 45 kg

DRUGS (3)
  1. SINGULAIR [Suspect]
     Active Substance: MONTELUKAST SODIUM
     Indication: ASTHMA
     Dosage: ?          QUANTITY:30 TABLET(S);?
     Route: 048
     Dates: start: 20161117, end: 20170426
  2. OTC FLONASE [Concomitant]
  3. PROAIR INHALER [Concomitant]

REACTIONS (4)
  - Depression [None]
  - Suicidal ideation [None]
  - Sleep disorder [None]
  - Nightmare [None]

NARRATIVE: CASE EVENT DATE: 20170426
